FAERS Safety Report 5660118-2 (Version None)
Quarter: 2008Q1

REPORT INFORMATION
  Report Type: 
  Country: None (occurrence: None)
  Receive Date: 20080311
  Receipt Date: 20070918
  Transmission Date: 20080703
  Serious: No
  Sender: FDA-Public Use
  Company Number: US-BAYER-200713017BCC

PATIENT
  Age: 58 Year
  Sex: Female
  Weight: 66 kg

DRUGS (2)
  1. ALEVE [Suspect]
     Indication: ARTHRITIS
     Route: 048
     Dates: start: 20070824
  2. TYLENOL ARTHRITIS PAIN ER CAPLET [Suspect]
     Indication: ARTHRITIS
     Dosage: TOTAL DAILY DOSE: 2600 MG  UNIT DOSE: 650 MG
     Route: 048
     Dates: start: 20050101

REACTIONS (1)
  - URTICARIA [None]
